FAERS Safety Report 10595361 (Version 1)
Quarter: 2014Q4

REPORT INFORMATION
  Report Type: Report from Study
  Country: DE (occurrence: DE)
  Receive Date: 20141120
  Receipt Date: 20141120
  Transmission Date: 20150529
  Serious: Yes (Hospitalization)
  Sender: FDA-Public Use
  Company Number: DE-ROCHE-1491133

PATIENT
  Age: 67 Year
  Sex: Female
  Weight: 55.2 kg

DRUGS (3)
  1. GEMCITABINE [Suspect]
     Active Substance: GEMCITABINE\GEMCITABINE HYDROCHLORIDE
     Indication: OVARIAN CANCER
     Dosage: LAST DOSE PRIOR TO SERIOUS ADVERSE EVENT 09/SEP/2014
     Route: 042
     Dates: start: 20140516
  2. CARBOPLATIN. [Suspect]
     Active Substance: CARBOPLATIN
     Indication: OVARIAN CANCER
     Dosage: 4 AUC, 09/FEB/2014 LAST DOSE PRIOR TO SERIOUS ADVERSE EVENT.
     Route: 042
     Dates: start: 20140516
  3. BEVACIZUMAB [Suspect]
     Active Substance: BEVACIZUMAB
     Indication: OVARIAN CANCER
     Dosage: 23/SEP/2014 DOSE PRIOR TO SERIOUS ADVERSE EVENT.
     Route: 042
     Dates: start: 20140516

REACTIONS (1)
  - Ascites [Recovered/Resolved]

NARRATIVE: CASE EVENT DATE: 20141112
